FAERS Safety Report 6999825-8 (Version None)
Quarter: 2010Q3

REPORT INFORMATION
  Report Type: 
  Country: None (occurrence: None)
  Receive Date: 20100920
  Receipt Date: 20100914
  Transmission Date: 20110219
  Serious: Yes (Death, Other)
  Sender: FDA-Public Use
  Company Number: PHHY2010FR60621

PATIENT
  Age: 22 Year
  Sex: Female

DRUGS (5)
  1. CYCLOSPORINE [Suspect]
     Indication: STEM CELL TRANSPLANT
  2. FLUDARABINE [Suspect]
  3. MELPHALAN HYDROCHLORIDE [Suspect]
     Dosage: UNK
  4. MYCOPHENOLATE MOFETIL [Suspect]
  5. PREDNISOLONE [Suspect]

REACTIONS (9)
  - CANDIDIASIS [None]
  - CHOLANGITIS [None]
  - CRYPTOSPORIDIOSIS INFECTION [None]
  - CYTOMEGALOVIRUS INFECTION [None]
  - DIARRHOEA [None]
  - IMMUNODEFICIENCY [None]
  - MULTI-ORGAN FAILURE [None]
  - PANCREATITIS [None]
  - SEPSIS [None]
